FAERS Safety Report 6368512-1 (Version None)
Quarter: 2009Q3

REPORT INFORMATION
  Report Type: 
  Country: None (occurrence: None)
  Receive Date: 20090922
  Receipt Date: 20090911
  Transmission Date: 20100115
  Serious: Yes (Hospitalization)
  Sender: FDA-Public Use
  Company Number: B0592847A

PATIENT
  Sex: Male
  Weight: 72 kg

DRUGS (4)
  1. ZELITREX [Suspect]
     Indication: HERPES OPHTHALMIC
     Dosage: 1G THREE TIMES PER DAY
     Route: 048
     Dates: start: 20090307, end: 20090430
  2. TAVANIC [Suspect]
     Indication: DRUG USE FOR UNKNOWN INDICATION
     Route: 048
     Dates: start: 20090307, end: 20090430
  3. TOBRADEX [Concomitant]
     Indication: DRUG USE FOR UNKNOWN INDICATION
     Route: 065
     Dates: start: 20090321, end: 20090430
  4. CHINESE MEDICATION (SELF-ADMINISTERED) [Concomitant]

REACTIONS (14)
  - ANGINA UNSTABLE [None]
  - BLOOD LACTATE DEHYDROGENASE INCREASED [None]
  - DRUG RASH WITH EOSINOPHILIA AND SYSTEMIC SYMPTOMS [None]
  - EOSINOPHILIA [None]
  - GENERAL SYMPTOM [None]
  - HEPATOCELLULAR INJURY [None]
  - LEUKOCYTOSIS [None]
  - LYMPHADENOPATHY [None]
  - OBESITY [None]
  - PYREXIA [None]
  - RASH ERYTHEMATOUS [None]
  - RASH MACULAR [None]
  - RASH PRURITIC [None]
  - RENAL IMPAIRMENT [None]
